FAERS Safety Report 4353170-8 (Version None)
Quarter: 2004Q2

REPORT INFORMATION
  Report Type: 
  Country: None (occurrence: None)
  Receive Date: 20040504
  Receipt Date: 20040504
  Transmission Date: 20050107
  Serious: Yes (Hospitalization)
  Sender: FDA-Public Use
  Company Number: None

PATIENT
  Sex: Female
  Weight: 59.8 kg

DRUGS (1)
  1. CARMUSTINE [Suspect]
     Indication: GLIOBLASTOMA MULTIFORME
     Dosage: 300 MG Q 6 WEEKS IV
     Route: 042
     Dates: start: 20040303, end: 20040303

REACTIONS (2)
  - CAROTID ARTERY STENOSIS [None]
  - CEREBRAL INFARCTION [None]
